FAERS Safety Report 8275259-3 (Version None)
Quarter: 2012Q2

REPORT INFORMATION
  Report Type: 
  Country: None (occurrence: None)
  Receive Date: 20120411
  Receipt Date: 20120401
  Transmission Date: 20120825
  Serious: Yes (Other)
  Sender: FDA-Public Use
  Company Number: JP-VALEANT-2012VX001586

PATIENT
  Age: 72 Year
  Sex: Male

DRUGS (4)
  1. OXALIPLATIN [Suspect]
     Route: 065
  2. FLUOROURACIL [Suspect]
     Route: 065
  3. LEUCOVORIN CALCIUM [Suspect]
     Route: 065
  4. BEVACIZUMAB [Suspect]
     Route: 065

REACTIONS (1)
  - LEUKOENCEPHALOPATHY [None]
